FAERS Safety Report 19014334 (Version 1)
Quarter: 2021Q1

REPORT INFORMATION
  Report Type: Spontaneous
  Country: NO (occurrence: NO)
  Receive Date: 20210316
  Receipt Date: 20210316
  Transmission Date: 20210420
  Serious: No
  Sender: FDA-Public Use
  Company Number: NO-GW PHARMA-202103NOGW01079

PATIENT

DRUGS (1)
  1. EPIDYOLEX [Suspect]
     Active Substance: CANNABIDIOL
     Indication: CONGENITAL CENTRAL NERVOUS SYSTEM ANOMALY
     Dosage: UNK
     Route: 048

REACTIONS (4)
  - Incorrect dose administered [Unknown]
  - Inability to afford medication [Unknown]
  - Seizure [Unknown]
  - Product use in unapproved indication [Unknown]
